FAERS Safety Report 7201964-3 (Version None)
Quarter: 2010Q4

REPORT INFORMATION
  Report Type: 
  Country: None (occurrence: None)
  Receive Date: 20101229
  Receipt Date: 20101129
  Transmission Date: 20110411
  Serious: No
  Sender: FDA-Public Use
  Company Number: US-BAYER-2010-006941

PATIENT
  Sex: Male
  Weight: 95 kg

DRUGS (6)
  1. ALEVE [Suspect]
     Dosage: 440MG/ 220MG, BID
     Dates: start: 20101116, end: 20101101
  2. ALEVE [Suspect]
     Dosage: 440 MG, UNK
     Dates: start: 20100101, end: 20101101
  3. ALEVE [Suspect]
     Dosage: 220 MG, UNK
     Dates: start: 20101126
  4. LIPITOR [Concomitant]
     Dosage: UNK UNK, UNK
  5. FISH OIL [Concomitant]
  6. VITAMIN D [Concomitant]

REACTIONS (2)
  - DIZZINESS [None]
  - FEELING ABNORMAL [None]
